FAERS Safety Report 6343308-5 (Version None)
Quarter: 2009Q3

REPORT INFORMATION
  Report Type: 
  Country: None (occurrence: None)
  Receive Date: 20090908
  Receipt Date: 20090828
  Transmission Date: 20100115
  Serious: Yes (Other)
  Sender: FDA-Public Use
  Company Number: PHHY2009BR13276

PATIENT
  Age: 80 Year
  Sex: Female
  Weight: 53 kg

DRUGS (3)
  1. ACLASTA [Suspect]
     Indication: OSTEOPOROSIS
     Dosage: UNK
     Dates: start: 20090323
  2. PURAN T4 [Concomitant]
     Indication: THYROID DISORDER
     Dosage: 1 TAB/DAY
     Route: 048
  3. LEXAPRO [Concomitant]
     Dosage: 1 TAB/DAY
     Dates: start: 20080401

REACTIONS (6)
  - ABASIA [None]
  - FATIGUE [None]
  - HYPOKINESIA [None]
  - PAIN [None]
  - PYREXIA [None]
  - TREMOR [None]
